FAERS Safety Report 9696827 (Version 3)
Quarter: 2014Q1

REPORT INFORMATION
  Report Type: Report from Study
  Country: FR (occurrence: FR)
  Receive Date: 20131119
  Receipt Date: 20140120
  Transmission Date: 20141002
  Serious: Yes (Hospitalization)
  Sender: FDA-Public Use
  Company Number: FR-ROCHE-1229771

PATIENT
  Age: 70 Year
  Sex: Female
  Weight: 43 kg

DRUGS (6)
  1. TRASTUZUMAB EMTANSINE [Suspect]
     Indication: BREAST CANCER METASTATIC
     Dosage: LAST DOSE PRIOR TO SAE 04/APR/2013, LAST DOSE PRIRO TO PYELONEPHRITIS: 16/MAY/2013
     Route: 042
     Dates: start: 20130221
  2. TRASTUZUMAB EMTANSINE [Suspect]
     Route: 042
     Dates: start: 20130718
  3. DUROGESIC [Concomitant]
     Route: 065
     Dates: start: 201212
  4. LEVOTHYROX [Concomitant]
     Route: 065
  5. OXYNORM [Concomitant]
     Route: 065
     Dates: start: 2013
  6. ZOMETA [Concomitant]
     Route: 065
     Dates: start: 20080702

REACTIONS (2)
  - Urinary tract obstruction [Recovered/Resolved]
  - Pyelonephritis [Recovered/Resolved]
